FAERS Safety Report 14113647 (Version 1)
Quarter: 2017Q4

REPORT INFORMATION
  Report Type: Spontaneous
  Country: KR (occurrence: KR)
  Receive Date: 20171023
  Receipt Date: 20171023
  Transmission Date: 20180321
  Serious: Yes (Hospitalization, Other)
  Sender: FDA-Public Use
  Company Number: KR-JNJFOC-20171017707

PATIENT
  Age: 35 Year
  Sex: Female

DRUGS (1)
  1. PALIPERIDONE. [Suspect]
     Active Substance: PALIPERIDONE
     Indication: SCHIZOPHRENIA
     Route: 048
     Dates: end: 201408

REACTIONS (4)
  - Treatment noncompliance [Unknown]
  - Depressed mood [Unknown]
  - Psychotic symptom [Unknown]
  - Anosognosia [Unknown]

NARRATIVE: CASE EVENT DATE: 2014
